FAERS Safety Report 7599731-4 (Version None)
Quarter: 2011Q2

REPORT INFORMATION
  Report Type: 
  Country: None (occurrence: None)
  Receive Date: 20110629
  Receipt Date: 20110616
  Transmission Date: 20111010
  Serious: Yes (Other)
  Sender: FDA-Public Use
  Company Number: 1000019124

PATIENT
  Age: 44 Year
  Sex: Female
  Weight: 100 kg

DRUGS (7)
  1. TELFAST (FEXOFENADINE (120 MILLIGRAM) (FEXOFENADINE) [Concomitant]
  2. TRAMADOL (TRAMADOL) (100 MILLIGRAM) (TRAMADOL) [Concomitant]
  3. ESCITALOPRAM OXALATE [Suspect]
     Indication: DEPRESSION
     Dosage: 10 MG (10 MG, 1 IN 1 D), ORAL
     Route: 048
  4. RANITIDIN (RANITIDINE HYDROCHLORIDE) (RANITIDINE HYDORCHLORIDE) [Concomitant]
  5. ESCITALOPRAM OXALATE [Suspect]
     Indication: DEPRESSION
     Dosage: 20 MG (20 MG, 1 IN 1 D), ORAL
     Route: 048
     Dates: start: 20050101
  6. PENTATOP (CROMOGLICATE SODIUM) (200 MILLIGRAM) (CROMOGLICATE SODIUM) [Concomitant]
  7. L-THYROXIN (LEVOTHYROXINE SODIUM) (88 MICROGRAM) (LEVOTHYROXINE SODIUM [Concomitant]

REACTIONS (5)
  - SYSTEMIC LUPUS ERYTHEMATOSUS [None]
  - PARAESTHESIA [None]
  - URGE INCONTINENCE [None]
  - NO THERAPEUTIC RESPONSE [None]
  - AURICULAR PERICHONDRITIS [None]
